FAERS Safety Report 12961583 (Version 1)
Quarter: 2016Q4

REPORT INFORMATION
  Report Type: Spontaneous
  Country: GB (occurrence: GB)
  Receive Date: 20161121
  Receipt Date: 20161121
  Transmission Date: 20170207
  Serious: Yes (Other)
  Sender: FDA-Public Use
  Company Number: GB-MYLANLABS-2016M1049802

PATIENT

DRUGS (8)
  1. ZOMORPH [Concomitant]
     Active Substance: MORPHINE SULFATE
     Dosage: 1 DF, QD (AT NIGHT -7PM)
     Dates: start: 20161011
  2. COCODAMOL [Concomitant]
     Active Substance: ACETAMINOPHEN\CODEINE PHOSPHATE
     Dosage: 2 DF, BID
     Dates: start: 20160511
  3. GABAPENTIN. [Suspect]
     Active Substance: GABAPENTIN
     Dosage: UNK
     Dates: start: 20150711
  4. AZELASTINE [Concomitant]
     Active Substance: AZELASTINE
     Dosage: 1 DF, BID
     Dates: start: 20160511
  5. DICLOFENAC DIETHYLAMMONIUM [Concomitant]
     Dosage: 1 DF, TID
     Dates: start: 20160923, end: 20160930
  6. FLUTICASONE PROPIONATE. [Concomitant]
     Active Substance: FLUTICASONE PROPIONATE
     Dosage: INHALE 1 OR 2 PUFFS TWICE DAILY
     Route: 055
     Dates: start: 20160511
  7. SALBUTAMOL [Concomitant]
     Active Substance: ALBUTEROL
     Dosage: 2 DF, UNK
     Route: 055
     Dates: start: 20160511
  8. TIOTROPIUM [Concomitant]
     Active Substance: TIOTROPIUM
     Dosage: 1 DF, QD
     Route: 055
     Dates: start: 20160511

REACTIONS (1)
  - Hallucination [Recovered/Resolved]

NARRATIVE: CASE EVENT DATE: 20161105
